FAERS Safety Report 8179353-7 (Version None)
Quarter: 2012Q1

REPORT INFORMATION
  Report Type: 
  Country: None (occurrence: None)
  Receive Date: 20120302
  Receipt Date: 20120227
  Transmission Date: 20120608
  Serious: Yes (Death)
  Sender: FDA-Public Use
  Company Number: FR-JNJFOC-20120213331

PATIENT
  Age: 55 Year
  Sex: Male

DRUGS (4)
  1. IMOVANE [Concomitant]
     Indication: PRODUCT USED FOR UNKNOWN INDICATION
     Route: 065
  2. PAROXETINE HYDROCHLORIDE [Concomitant]
     Indication: PRODUCT USED FOR UNKNOWN INDICATION
     Route: 065
  3. RISPERDAL CONSTA [Suspect]
     Indication: SCHIZOPHRENIA
     Route: 030
     Dates: start: 20080101
  4. TERCIAN [Concomitant]
     Indication: ANXIETY
     Dosage: 1 TABLET IN THE EVNING
     Route: 048

REACTIONS (1)
  - DEATH [None]
